FAERS Safety Report 6416022-5 (Version None)
Quarter: 2009Q4

REPORT INFORMATION
  Report Type: 
  Country: None (occurrence: None)
  Receive Date: 20091027
  Receipt Date: 20091015
  Transmission Date: 20100525
  Serious: Yes (Hospitalization)
  Sender: FDA-Public Use
  Company Number: US-AVENTIS-200919337US

PATIENT
  Age: 77 Year
  Sex: Female
  Weight: 59.09 kg

DRUGS (3)
  1. ANZEMET [Suspect]
     Dosage: DOSE: 100 MG IN 50 ML SALINE OVER 10 MIN
     Route: 042
     Dates: start: 20091002, end: 20091002
  2. DEXAMETHASONE [Concomitant]
     Indication: NON-HODGKIN'S LYMPHOMA
     Route: 042
     Dates: start: 20091002, end: 20091002
  3. GEMZAR [Concomitant]
     Indication: NON-HODGKIN'S LYMPHOMA
     Dosage: DOSE: UNK
     Dates: start: 20091002

REACTIONS (1)
  - RESUSCITATION [None]
